FAERS Safety Report 24658396 (Version 1)
Quarter: 2024Q4

REPORT INFORMATION
  Report Type: Spontaneous
  Country: CH (occurrence: CH)
  Receive Date: 20241125
  Receipt Date: 20241125
  Transmission Date: 20250115
  Serious: Yes (Hospitalization)
  Sender: MYLAN
  Company Number: None

PATIENT
  Age: 80 Year
  Sex: Male

DRUGS (28)
  1. TORSEMIDE [Suspect]
     Active Substance: TORSEMIDE
     Indication: Product used for unknown indication
     Dosage: 200 MILLIGRAM, QD
     Route: 065
     Dates: start: 20240618, end: 20240620
  2. TORSEMIDE [Suspect]
     Active Substance: TORSEMIDE
     Dosage: 100 MILLIGRAM, QD
     Route: 065
     Dates: start: 20240624, end: 20240721
  3. ATORVASTATIN [Suspect]
     Active Substance: ATORVASTATIN
     Indication: Product used for unknown indication
     Dosage: 40 MILLIGRAM, QD
     Route: 065
     Dates: start: 202403
  4. LASIX [Suspect]
     Active Substance: FUROSEMIDE
     Indication: Cardiac failure
     Dosage: 10 MILLIGRAM, QH (10MG/H)
     Route: 042
     Dates: start: 20240721, end: 20240723
  5. LASIX [Suspect]
     Active Substance: FUROSEMIDE
     Dosage: 15 MILLIGRAM, QH (15MG/H)
     Route: 042
     Dates: start: 20240724, end: 20240803
  6. LASIX [Suspect]
     Active Substance: FUROSEMIDE
     Dosage: 17 MILLIGRAM, QH (17MG/H)
     Route: 042
     Dates: start: 20240804, end: 20240804
  7. LASIX [Suspect]
     Active Substance: FUROSEMIDE
     Dosage: 20 MILLIGRAM, QH (20MG/H)
     Route: 042
     Dates: start: 20240805, end: 20240806
  8. LASIX [Suspect]
     Active Substance: FUROSEMIDE
     Dosage: 25 MILLIGRAM, QH (25MG/H)
     Route: 042
     Dates: start: 20240807, end: 20240807
  9. LASIX [Suspect]
     Active Substance: FUROSEMIDE
     Dosage: 30 MILLIGRAM, QH (30MG/H)
     Route: 042
     Dates: start: 20240808
  10. LASIX [Suspect]
     Active Substance: FUROSEMIDE
     Dosage: 30 MILLIGRAM, QH (30MG/H)
     Route: 042
     Dates: start: 202405, end: 20240617
  11. DAPAGLIFLOZIN [Suspect]
     Active Substance: DAPAGLIFLOZIN
     Indication: Product used for unknown indication
     Dosage: 5 MILLIGRAM, QD
     Route: 065
     Dates: start: 20240530
  12. DAPAGLIFLOZIN [Suspect]
     Active Substance: DAPAGLIFLOZIN
     Dosage: 10 MILLIGRAM, QD
     Route: 065
     Dates: start: 20240717
  13. ALDACTONE [Suspect]
     Active Substance: SPIRONOLACTONE
     Indication: Product used for unknown indication
     Dosage: 25 MILLIGRAM, QD
     Route: 065
     Dates: start: 20240510
  14. VITAMINS [Suspect]
     Active Substance: VITAMINS
     Indication: Product used for unknown indication
     Dosage: 1 DOSAGE FORM, QD
     Route: 065
     Dates: start: 202403
  15. VITAMINS [Suspect]
     Active Substance: VITAMINS
     Dosage: 1 DOSAGE FORM, QD
     Route: 065
     Dates: start: 202405
  16. VITAMINS [Suspect]
     Active Substance: VITAMINS
     Dosage: 1 DOSAGE FORM, QD
     Route: 065
     Dates: start: 202407
  17. METOLAZONE [Suspect]
     Active Substance: METOLAZONE
     Indication: Hypovolaemia
     Dosage: 2.5 MG, PRN (OCCASIONALLY ON 11, 12, 22, 23, 24, 28 AND 31 JULY, THEN ON 1, 2, 5, 7, 13 AND 15 AUG)
     Route: 065
  18. LANTUS [Concomitant]
     Active Substance: INSULIN GLARGINE
     Indication: Product used for unknown indication
     Dosage: UNK
     Route: 065
  19. SINTROM [Concomitant]
     Active Substance: ACENOCOUMAROL
     Indication: Product used for unknown indication
     Dosage: UNK
     Route: 065
  20. Maltofer [Concomitant]
     Dosage: UNK
     Route: 065
  21. LACTITOL [Concomitant]
     Active Substance: LACTITOL
     Dosage: UNK
     Route: 065
  22. MELATONIN [Concomitant]
     Active Substance: MELATONIN
     Dosage: UNK
     Route: 065
  23. METOPROLOL [Concomitant]
     Active Substance: METOPROLOL
     Dosage: UNK
     Route: 065
  24. DAFALGAN [Concomitant]
     Active Substance: ACETAMINOPHEN
     Dosage: UNK
     Route: 065
  25. POTASSIUM CHLORIDE [Concomitant]
     Active Substance: POTASSIUM CHLORIDE
     Dosage: UNK
     Route: 065
  26. KCL [Concomitant]
     Active Substance: POTASSIUM CHLORIDE
     Dosage: UNK
     Route: 065
  27. THIAMINE HYDROCHLORIDE [Concomitant]
     Active Substance: THIAMINE HYDROCHLORIDE
     Dosage: UNK
     Route: 065
  28. CHOLECALCIFEROL [Concomitant]
     Active Substance: CHOLECALCIFEROL
     Dosage: UNK
     Route: 065

REACTIONS (2)
  - Eczema [Not Recovered/Not Resolved]
  - Pruritus [Recovering/Resolving]

NARRATIVE: CASE EVENT DATE: 20240715
